FAERS Safety Report 6795258-8 (Version None)
Quarter: 2010Q2

REPORT INFORMATION
  Report Type: 
  Country: None (occurrence: None)
  Receive Date: 20100625
  Receipt Date: 20100616
  Transmission Date: 20101027
  Serious: Yes (Disabling)
  Sender: FDA-Public Use
  Company Number: FR-ABBOTT-04P-056-0264627-00

PATIENT
  Sex: Female

DRUGS (6)
  1. KALETRA [Suspect]
     Indication: DRUG USE FOR UNKNOWN INDICATION
     Route: 048
     Dates: start: 20040129
  2. COMBIVIR [Suspect]
     Indication: DRUG USE FOR UNKNOWN INDICATION
     Route: 048
     Dates: start: 20010405, end: 20040102
  3. COMBIVIR [Suspect]
     Route: 048
     Dates: start: 20040129
  4. EFAVIRENZ [Suspect]
     Indication: DRUG USE FOR UNKNOWN INDICATION
     Route: 048
     Dates: start: 20010405, end: 20040102
  5. BUPRENORPHINE [Suspect]
     Indication: DRUG USE FOR UNKNOWN INDICATION
     Route: 060
  6. RETROVIR [Concomitant]
     Indication: DRUG USE FOR UNKNOWN INDICATION
     Dates: start: 20040601

REACTIONS (2)
  - POLYHYDRAMNIOS [None]
  - PREMATURE LABOUR [None]
